FAERS Safety Report 7322938-8 (Version None)
Quarter: 2011Q1

REPORT INFORMATION
  Report Type: 
  Country: None (occurrence: None)
  Receive Date: 20110301
  Receipt Date: 20110216
  Transmission Date: 20110831
  Serious: Yes (Other)
  Sender: FDA-Public Use
  Company Number: PHHY2011US12807

PATIENT
  Age: 60 Year
  Sex: Female

DRUGS (1)
  1. ZOLEDRONATE [Suspect]
     Indication: BREAST CANCER METASTATIC
     Route: 042

REACTIONS (6)
  - PATHOLOGICAL FRACTURE [None]
  - JAW FRACTURE [None]
  - OSTEONECROSIS OF JAW [None]
  - ORAL CAVITY FISTULA [None]
  - GINGIVAL PAIN [None]
  - GINGIVAL INFECTION [None]
